FAERS Safety Report 9805653 (Version 1)
Quarter: 2014Q1

REPORT INFORMATION
  Report Type: Spontaneous
  Country: US (occurrence: None)
  Receive Date: 20140107
  Receipt Date: 20140107
  Transmission Date: 20141002
  Serious: Yes (Death)
  Sender: FDA-Public Use
  Company Number: 2013P1022301

PATIENT
  Age: 73 Year
  Sex: Male

DRUGS (1)
  1. CLINDAMYCIN [Suspect]
     Indication: PNEUMONIA ASPIRATION

REACTIONS (9)
  - Acute hepatic failure [None]
  - Decreased appetite [None]
  - Nausea [None]
  - Fatigue [None]
  - Blood pressure decreased [None]
  - Heart rate increased [None]
  - Encephalopathy [None]
  - Rales [None]
  - Acute respiratory distress syndrome [None]
